FAERS Safety Report 8801015 (Version 2)
Quarter: 2014Q3

REPORT INFORMATION
  Report Type: Report from Study
  Country: US (occurrence: US)
  Receive Date: 20120920
  Receipt Date: 20140901
  Transmission Date: 20150326
  Serious: Yes (Death, Other)
  Sender: FDA-Public Use
  Company Number: US-ROCHE-1124467

PATIENT
  Sex: Female
  Weight: 75 kg

DRUGS (7)
  1. ZOMETA [Concomitant]
     Active Substance: ZOLEDRONIC ACID
     Route: 065
     Dates: start: 20050607, end: 20050810
  2. AVASTIN [Suspect]
     Active Substance: BEVACIZUMAB
     Indication: MALIGNANT URINARY TRACT NEOPLASM
  3. TARCEVA [Suspect]
     Active Substance: ERLOTINIB HYDROCHLORIDE
     Indication: METASTATIC RENAL CELL CARCINOMA
     Route: 048
     Dates: start: 20050607, end: 20050810
  4. AVASTIN [Suspect]
     Active Substance: BEVACIZUMAB
     Indication: METASTATIC RENAL CELL CARCINOMA
     Route: 042
     Dates: start: 20050607, end: 20050810
  5. TARCEVA [Suspect]
     Active Substance: ERLOTINIB HYDROCHLORIDE
     Indication: MALIGNANT URINARY TRACT NEOPLASM
  6. AVASTIN [Suspect]
     Active Substance: BEVACIZUMAB
     Indication: RENAL CANCER
     Route: 042
     Dates: start: 20050525, end: 20050525
  7. AVASTIN [Suspect]
     Active Substance: BEVACIZUMAB
     Indication: BONE CANCER

REACTIONS (4)
  - Off label use [Unknown]
  - Metastasis [Unknown]
  - Death [Fatal]
  - Neoplasm [Unknown]
